FAERS Safety Report 18216678 (Version 1)
Quarter: 2020Q3

REPORT INFORMATION
  Report Type: Spontaneous
  Country: US (occurrence: US)
  Receive Date: 20200831
  Receipt Date: 20200831
  Transmission Date: 20201103
  Serious: Yes (Hospitalization)
  Sender: FDA-Public Use
  Company Number: None

PATIENT
  Age: 69 Year
  Sex: Male
  Weight: 91 kg

DRUGS (1)
  1. VANCOMUCIN (VANCOMYCIN HCL 100MG/ML INJ) [Suspect]
     Active Substance: VANCOMYCIN HYDROCHLORIDE
     Indication: OSTEOMYELITIS
     Route: 042
     Dates: start: 20200818, end: 20200818

REACTIONS (5)
  - Anaphylactic reaction [None]
  - Shock [None]
  - Hypotension [None]
  - Paraesthesia oral [None]
  - Chills [None]

NARRATIVE: CASE EVENT DATE: 20200818
